FAERS Safety Report 12688470 (Version 1)
Quarter: 2016Q3

REPORT INFORMATION
  Report Type: Spontaneous
  Country: US (occurrence: None)
  Receive Date: 20160825
  Receipt Date: 20160825
  Transmission Date: 20161109
  Serious: No
  Sender: FDA-Public Use
  Company Number: None

PATIENT

DRUGS (2)
  1. EFFIENT [Suspect]
     Active Substance: PRASUGREL HYDROCHLORIDE
  2. ELIQUIS [Suspect]
     Active Substance: APIXABAN

REACTIONS (1)
  - Wrong drug administered [None]
